FAERS Safety Report 15764694 (Version 4)
Quarter: 2019Q1

REPORT INFORMATION
  Report Type: Spontaneous
  Country: FR (occurrence: FR)
  Receive Date: 20181227
  Receipt Date: 20190206
  Transmission Date: 20190417
  Serious: Yes (Other)
  Sender: FDA-Public Use
  Company Number: FR-AUROBINDO-AUR-APL-2018-001948

PATIENT

DRUGS (10)
  1. TERBINAFINE. [Suspect]
     Active Substance: TERBINAFINE
     Indication: OSTEOMYELITIS
  2. TERBINAFINE. [Suspect]
     Active Substance: TERBINAFINE
     Indication: ARTHRITIS INFECTIVE
  3. TERBINAFINE. [Suspect]
     Active Substance: TERBINAFINE
     Indication: SCEDOSPORIUM INFECTION
     Dosage: 1000 MILLIGRAM, ONCE A DAY (500 MG, 2X/DAY)
     Route: 065
  4. VORICONAZOLE. [Suspect]
     Active Substance: VORICONAZOLE
     Indication: SCEDOSPORIUM INFECTION
     Dosage: VORICONAZOLE: 200 MG BID AFTER A LOADING DOSE OF 400 MG BID, LATER A PROGRESSIVE DOSE INCREASE TO...
     Route: 065
  5. MILTEFOSINE [Suspect]
     Active Substance: MILTEFOSINE
     Dosage: 50 MILLIGRAM, ONCE A DAY
     Route: 065
  6. CEFTRIAXONE. [Concomitant]
     Active Substance: CEFTRIAXONE
     Indication: STAPHYLOCOCCUS TEST POSITIVE
     Dosage: 3 GRAM, ONCE A DAY
     Route: 065
  7. VORICONAZOLE. [Suspect]
     Active Substance: VORICONAZOLE
     Indication: ARTHRITIS INFECTIVE
     Dosage: 200 MG, 2X/DAY
     Route: 065
  8. MILTEFOSINE [Suspect]
     Active Substance: MILTEFOSINE
     Indication: SCEDOSPORIUM INFECTION
     Dosage: 150 MILLIGRAM, ONCE A DAY, 50 MG, 3X/DAY
     Route: 065
  9. VORICONAZOLE. [Suspect]
     Active Substance: VORICONAZOLE
     Indication: OSTEOMYELITIS
     Dosage: 400 MG, BID (LOADING DOSE)
     Route: 065
  10. VORICONAZOLE. [Suspect]
     Active Substance: VORICONAZOLE
     Dosage: 1600, 800 MG, BID (LOADING PROGRESSIVE DOSE
     Route: 065

REACTIONS (11)
  - Off label use [Recovered/Resolved]
  - Drug level decreased [Unknown]
  - Asthenia [Recovered/Resolved]
  - Disease recurrence [Recovered/Resolved]
  - Squamous cell carcinoma of skin [Unknown]
  - Product use issue [Unknown]
  - Photosensitivity reaction [Recovered/Resolved]
  - Treatment failure [Unknown]
  - Visual impairment [Recovered/Resolved]
  - Nausea [Recovered/Resolved]
  - Drug effective for unapproved indication [Unknown]
